FAERS Safety Report 12458970 (Version 3)
Quarter: 2024Q4

REPORT INFORMATION
  Report Type: Report from Study
  Country: IT (occurrence: IT)
  Receive Date: 20160613
  Receipt Date: 20241104
  Transmission Date: 20250115
  Serious: Yes (Life-Threatening, Hospitalization, Other)
  Sender: AUROBINDO
  Company Number: IT-AUROBINDO-AUR-APL-2016-07583

PATIENT
  Age: 74 Year
  Sex: Female
  Weight: 78 kg

DRUGS (24)
  1. AMISULPRIDE [Interacting]
     Active Substance: AMISULPRIDE
     Indication: Product used for unknown indication
     Dosage: UNK
     Route: 065
  2. SERTRALINE [Interacting]
     Active Substance: SERTRALINE HYDROCHLORIDE
     Indication: Antidepressant therapy
     Dosage: 25 MILLIGRAM, DAILY
     Route: 065
  3. FENTANYL [Interacting]
     Active Substance: FENTANYL
     Indication: Anaesthesia
     Dosage: 250 ?G, UNK
     Route: 065
  4. METHYLENE BLUE [Interacting]
     Active Substance: METHYLENE BLUE
     Indication: Vasoplegia syndrome
     Dosage: 100 MILLIGRAM, TWO TIMES A DAY
     Route: 065
  5. TRAZODONE [Interacting]
     Active Substance: TRAZODONE HYDROCHLORIDE
     Indication: Product used for unknown indication
     Dosage: UNK
     Route: 065
  6. PROPOFOL [Interacting]
     Active Substance: PROPOFOL
     Indication: Anaesthesia
     Dosage: 100 MILLIGRAM
     Route: 065
  7. PROPOFOL [Interacting]
     Active Substance: PROPOFOL
     Dosage: 962 MILLIGRAM
     Route: 065
  8. ROCURONIUM [Interacting]
     Active Substance: ROCURONIUM BROMIDE
     Indication: Anaesthesia
     Dosage: 170 MILLIGRAM
     Route: 065
  9. ROCURONIUM [Interacting]
     Active Substance: ROCURONIUM BROMIDE
     Dosage: 50 MILLIGRAM
     Route: 065
  10. SEVOFLURANE [Interacting]
     Active Substance: SEVOFLURANE
     Indication: Anaesthesia
     Dosage: UNK (0.5-1 MAC/HR)
     Route: 065
  11. NOREPINEPHRINE [Interacting]
     Active Substance: NOREPINEPHRINE\NOREPINEPHRINE BITARTRATE
     Indication: Anaesthesia
     Dosage: UNK
     Route: 065
  12. LEVOTHYROXINE [Interacting]
     Active Substance: LEVOTHYROXINE
     Indication: Anaesthesia
     Dosage: UNK
     Route: 065
  13. LANSOPRAZOLE [Interacting]
     Active Substance: LANSOPRAZOLE
     Indication: Anaesthesia
     Dosage: UNK
     Route: 065
  14. GABAPENTIN [Interacting]
     Active Substance: GABAPENTIN
     Indication: Anaesthesia
     Dosage: UNK
     Route: 065
  15. VITAMIN D [Interacting]
     Active Substance: VITAMIN D NOS
     Indication: Anaesthesia
     Dosage: UNK
     Route: 065
  16. FUROSEMIDE [Interacting]
     Active Substance: FUROSEMIDE
     Indication: Anaesthesia
     Dosage: UNK
     Route: 065
  17. SIMVASTATIN [Interacting]
     Active Substance: SIMVASTATIN
     Indication: Anaesthesia
     Dosage: UNK
     Route: 065
  18. CANRENONE [Interacting]
     Active Substance: CANRENONE
     Indication: Anaesthesia
     Dosage: UNK
     Route: 065
  19. ACETAMINOPHEN [Interacting]
     Active Substance: ACETAMINOPHEN
     Indication: Anaesthesia
     Dosage: UNK
     Route: 065
  20. ALLOPURINOL [Interacting]
     Active Substance: ALLOPURINOL
     Indication: Anaesthesia
     Dosage: UNK
     Route: 065
  21. PREDNISONE [Interacting]
     Active Substance: PREDNISONE
     Indication: Anaesthesia
     Dosage: UNK
     Route: 065
  22. METHOTREXATE [Interacting]
     Active Substance: METHOTREXATE
     Indication: Anaesthesia
     Dosage: UNK
     Route: 065
  23. NITROGLYCERIN [Interacting]
     Active Substance: NITROGLYCERIN
     Indication: Anaesthesia
     Dosage: UNK
     Route: 065
  24. MINERALS\VITAMINS [Interacting]
     Active Substance: MINERALS\VITAMINS
     Indication: Anaesthesia
     Dosage: UNK
     Route: 065

REACTIONS (9)
  - Serotonin syndrome [Unknown]
  - Coma [Unknown]
  - Drug interaction [Unknown]
  - Cardiogenic shock [Unknown]
  - Multiple organ dysfunction syndrome [Unknown]
  - Sepsis [Unknown]
  - Toxicity to various agents [Unknown]
  - Nystagmus [Unknown]
  - Agitation [Unknown]
